FAERS Safety Report 13259952 (Version 2)
Quarter: 2017Q2

REPORT INFORMATION
  Report Type: Spontaneous
  Country: AU (occurrence: AU)
  Receive Date: 20170222
  Receipt Date: 20170509
  Transmission Date: 20170830
  Serious: Yes (Other)
  Sender: FDA-Public Use
  Company Number: AU-AMGEN-AUSSP2017025632

PATIENT
  Age: 76 Year
  Sex: Female

DRUGS (6)
  1. MOVICOL [Concomitant]
     Active Substance: POLYETHYLENE GLYCOL 3350\POTASSIUM CHLORIDE\SODIUM BICARBONATE\SODIUM CHLORIDE
     Dosage: 13.125 G, QD
  2. DICLOFENAC [Concomitant]
     Active Substance: DICLOFENAC
     Dosage: 25 MG, TID
  3. VAGIFEM [Concomitant]
     Active Substance: ESTRADIOL
     Indication: MENOPAUSE
  4. PROLIA [Suspect]
     Active Substance: DENOSUMAB
     Indication: OSTEOPOROSIS POSTMENOPAUSAL
     Dosage: 60 MG/ML, Q6MO
     Route: 065
     Dates: start: 2013
  5. METAMUCIL ORANGE [Concomitant]
     Dosage: 2.5/5.8 G (1-2 TEASPOON), QD
  6. VITAMIN D [Concomitant]
     Active Substance: CHOLECALCIFEROL
     Dosage: 1000 IU, QD

REACTIONS (9)
  - Synovial cyst [Unknown]
  - Osteonecrosis of jaw [Unknown]
  - Device related infection [Unknown]
  - Osteomyelitis [Unknown]
  - Vitamin D deficiency [Unknown]
  - Intervertebral disc protrusion [Unknown]
  - Dental implantation [Unknown]
  - Endodontic procedure [Unknown]
  - Colon adenoma [Unknown]

NARRATIVE: CASE EVENT DATE: 2013
